FAERS Safety Report 11700918 (Version 1)
Quarter: 2015Q4

REPORT INFORMATION
  Report Type: Spontaneous
  Country: US (occurrence: US)
  Receive Date: 20151105
  Receipt Date: 20151105
  Transmission Date: 20160304
  Serious: No
  Sender: FDA-Public Use
  Company Number: US-ENDO PHARMACEUTICALS INC.-2015-000084

PATIENT
  Sex: Male

DRUGS (1)
  1. VALPROIC ACID. [Suspect]
     Active Substance: VALPROIC ACID
     Indication: BIPOLAR DISORDER
     Dosage: 1 TEASPOON IN AM AND 2 TEASPOONS AT NIGHT
     Route: 065

REACTIONS (5)
  - Abnormal behaviour [Unknown]
  - Condition aggravated [Unknown]
  - Psychomotor hyperactivity [Unknown]
  - Agitation [Unknown]
  - Drug administered to patient of inappropriate age [Recovered/Resolved]
